FAERS Safety Report 9855477 (Version 3)
Quarter: 2014Q1

REPORT INFORMATION
  Report Type: Spontaneous
  Country: US (occurrence: US)
  Receive Date: 20140130
  Receipt Date: 20140305
  Transmission Date: 20141002
  Serious: Yes (Death, Other)
  Sender: FDA-Public Use
  Company Number: US-ASTELLAS-2014US000785

PATIENT
  Age: 70 Year
  Sex: Male
  Weight: 60.4 kg

DRUGS (9)
  1. XTANDI [Suspect]
     Indication: PROSTATE CANCER
     Dosage: 160 MG, UID/QD
     Route: 048
     Dates: start: 20130510, end: 2013
  2. LUPRON [Concomitant]
     Indication: PROSTATE CANCER
     Dosage: EVERY THREE MONTHS
     Route: 065
  3. XGEVA [Concomitant]
     Indication: PROSTATE CANCER
     Dosage: UNK
     Route: 065
  4. VITRUM CALCIUM + VIT D3 [Concomitant]
     Indication: PRODUCT USED FOR UNKNOWN INDICATION
     Dosage: 1 DF, BID
     Route: 048
     Dates: start: 20130205
  5. LORAZEPAM [Concomitant]
     Indication: NAUSEA
     Dosage: 0.5 MG, EVERY 4 HOURS AS NEEDED
     Route: 048
     Dates: start: 20130731
  6. LORAZEPAM [Concomitant]
     Indication: VOMITING
  7. PREDNISONE [Concomitant]
     Indication: PRODUCT USED FOR UNKNOWN INDICATION
     Dosage: 5 MG, BID
     Route: 048
     Dates: start: 20130529
  8. PROCHLORPERAZINE MALEATE [Concomitant]
     Indication: NAUSEA
     Dosage: 10 MG, EVERY 6 HOURS AS NEEDED.
     Route: 048
     Dates: start: 20130731
  9. PROCHLORPERAZINE MALEATE [Concomitant]
     Indication: VOMITING

REACTIONS (11)
  - Ureteral stent insertion [Unknown]
  - Hiatus hernia [Unknown]
  - Renal cyst [Unknown]
  - Bladder disorder [Unknown]
  - Anaemia [Unknown]
  - Decreased appetite [Unknown]
  - Back pain [Unknown]
  - Pain [Unknown]
  - Asthenia [Unknown]
  - Fatigue [Unknown]
  - Malignant neoplasm progression [Fatal]
